FAERS Safety Report 19867983 (Version 1)
Quarter: 2021Q3

REPORT INFORMATION
  Report Type: Spontaneous
  Country: US (occurrence: US)
  Receive Date: 20210922
  Receipt Date: 20210922
  Transmission Date: 20211014
  Serious: Yes (Hospitalization)
  Sender: FDA-Public Use
  Company Number: NVSC2021US214043

PATIENT
  Sex: Female

DRUGS (3)
  1. VOTRIENT [Suspect]
     Active Substance: PAZOPANIB HYDROCHLORIDE
     Indication: NEOPLASM MALIGNANT
     Dosage: 400 MG (2 TABLETS DAILY FOR 7 DAYS)
     Route: 048
     Dates: start: 20210902
  2. VOTRIENT [Suspect]
     Active Substance: PAZOPANIB HYDROCHLORIDE
     Dosage: 600 MG, (3 TABLETS DAILY FOR 7 DAYS)
     Route: 048
  3. VOTRIENT [Suspect]
     Active Substance: PAZOPANIB HYDROCHLORIDE
     Dosage: 800 MG, (4 TABLETS DAILY FOR 14 DAYS)
     Route: 048

REACTIONS (3)
  - Pyrexia [Unknown]
  - Epistaxis [Unknown]
  - Dehydration [Unknown]
